FAERS Safety Report 25404260 (Version 1)
Quarter: 2025Q2

REPORT INFORMATION
  Report Type: Spontaneous
  Country: LT (occurrence: LT)
  Receive Date: 20250606
  Receipt Date: 20250606
  Transmission Date: 20250716
  Serious: Yes (Life-Threatening, Hospitalization)
  Sender: BOEHRINGER INGELHEIM
  Company Number: None

PATIENT
  Age: 66 Year
  Sex: Female
  Weight: 75 kg

DRUGS (11)
  1. JARDIANCE [Suspect]
     Active Substance: EMPAGLIFLOZIN
     Indication: Type 2 diabetes mellitus
  2. METFORMIN HYDROCHLORIDE [Suspect]
     Active Substance: METFORMIN HYDROCHLORIDE
     Indication: Type 2 diabetes mellitus
     Dosage: 2550 MG (1 TABLET 3 TIMES A DAY)
  3. GLICLAZIDE [Suspect]
     Active Substance: GLICLAZIDE
     Indication: Type 2 diabetes mellitus
     Dosage: 120 MG (2 TAB. 1 TIME A DAY)
  4. RYBELSUS [Suspect]
     Active Substance: SEMAGLUTIDE
     Indication: Type 2 diabetes mellitus
     Dosage: 14 MG (1 TABLET 1 TIME A DAY)
  5. L-Thyroxin Berlin-Chemie 50 mikrogram? tablet?s [Concomitant]
     Indication: Hypothyroidism
     Dosage: 50 ?G (1 TABLET 1 TIME/DAY)
  6. Milurit 150 mg tablet?s [Concomitant]
     Indication: Gout
     Dosage: 150 MG (1 TABLET 1 TIME A DAY)
  7. Nebilet 5 mg tablet?s [Concomitant]
     Indication: Hypertensive heart disease
     Dosage: 5 MG (1 TABLET 1 TIME A DAY)
  8. Risendros 35 mg pl?vele dengtos tablet?s [Concomitant]
     Indication: Osteoporosis
     Dosage: 35 MG (1 TABLET PER WEEK)
  9. Roswera 10 mg pl?vele dengtos tablet?s [Concomitant]
     Indication: Hyperlipidaemia
     Dosage: 10 MG (1 TABLET 1 TIME A DAY)
  10. Valsacombi 80 mg/12,5 mg pl?vele dengtos tablet?s [Concomitant]
     Indication: Hypertensive heart disease
     Dosage: 80 MG/12.5 MG (1 TABLET 1 TIME A DAY)
  11. Wamlox 10 mg/160 mg pl?vele dengtos tablet?s [Concomitant]
     Indication: Hypertensive heart disease
     Dosage: 10 MG/160 MG (1 TABLET 1 TIME PER DAY)

REACTIONS (16)
  - Hypoglycaemia [Recovering/Resolving]
  - Dizziness [Recovering/Resolving]
  - Back pain [Recovering/Resolving]
  - Agitation [Recovering/Resolving]
  - Restlessness [Recovering/Resolving]
  - Moaning [Recovering/Resolving]
  - Altered state of consciousness [Recovering/Resolving]
  - Ketoacidosis [Recovering/Resolving]
  - Acute kidney injury [Recovering/Resolving]
  - Coma [Recovering/Resolving]
  - Multiple organ dysfunction syndrome [Recovering/Resolving]
  - Toxicity to various agents [Recovering/Resolving]
  - Medication error [Recovering/Resolving]
  - Drug interaction [Recovering/Resolving]
  - Nausea [Recovering/Resolving]
  - Vomiting [Recovering/Resolving]

NARRATIVE: CASE EVENT DATE: 20250528
